FAERS Safety Report 17452961 (Version 1)
Quarter: 2020Q1

REPORT INFORMATION
  Report Type: Spontaneous
  Country: DE (occurrence: DE)
  Receive Date: 20200224
  Receipt Date: 20200224
  Transmission Date: 20200409
  Serious: Yes (Other)
  Sender: FDA-Public Use
  Company Number: DE-MYLANLABS-2020M1018988

PATIENT
  Age: 32 Year
  Sex: Female
  Weight: 43 kg

DRUGS (1)
  1. LEVOFLOXACIN. [Suspect]
     Active Substance: LEVOFLOXACIN
     Indication: PRODUCT USED FOR UNKNOWN INDICATION
     Dosage: UNK
     Dates: start: 20191007, end: 20191010

REACTIONS (4)
  - Suicidal ideation [Unknown]
  - Skin burning sensation [Unknown]
  - Oral discomfort [Unknown]
  - Tendonitis [Unknown]

NARRATIVE: CASE EVENT DATE: 20191007
